FAERS Safety Report 8362516-5 (Version None)
Quarter: 2012Q2

REPORT INFORMATION
  Report Type: 
  Country: None (occurrence: None)
  Receive Date: 20120516
  Receipt Date: 20120510
  Transmission Date: 20120825
  Serious: Yes (Death)
  Sender: FDA-Public Use
  Company Number: VE-ELI_LILLY_AND_COMPANY-VE201205004536

PATIENT
  Age: 72 Year
  Sex: Male

DRUGS (2)
  1. HUMALOG MIX 75/25 [Suspect]
     Indication: TYPE 2 DIABETES MELLITUS
     Dosage: 9 U, EACH MORNING
     Dates: start: 20120218
  2. HUMALOG MIX 75/25 [Suspect]
     Dosage: 5 U, EACH EVENING
     Dates: start: 20120218

REACTIONS (1)
  - AMYOTROPHIC LATERAL SCLEROSIS [None]
